FAERS Safety Report 4942327-0 (Version None)
Quarter: 2006Q1

REPORT INFORMATION
  Report Type: 
  Country: None (occurrence: None)
  Receive Date: 20060313
  Receipt Date: 20051212
  Transmission Date: 20060701
  Serious: No
  Sender: FDA-Public Use
  Company Number: US-GLAXOSMITHKLINE-A0585453A

PATIENT
  Age: 78 Year
  Sex: Male

DRUGS (1)
  1. NICORETTE [Suspect]

REACTIONS (2)
  - GLOSSODYNIA [None]
  - TONGUE DISORDER [None]
